FAERS Safety Report 17299069 (Version 2)
Quarter: 2020Q1

REPORT INFORMATION
  Report Type: Report from Study
  Country: GB (occurrence: GB)
  Receive Date: 20200121
  Receipt Date: 20200326
  Transmission Date: 20200409
  Serious: Yes (Death, Hospitalization, Other)
  Sender: FDA-Public Use
  Company Number: GB-PFM-2020-00787

PATIENT

DRUGS (24)
  1. VINORELBINE TARTRATE. [Suspect]
     Active Substance: VINORELBINE TARTRATE
     Indication: BREAST CANCER METASTATIC
     Dosage: 150 MG, UNK
     Route: 048
     Dates: start: 20160122, end: 20160318
  2. OMEPRAZOLE. [Concomitant]
     Active Substance: OMEPRAZOLE
     Indication: GASTRIC POLYPS
     Dosage: 40 MG, QD (1/DAY)
     Route: 048
     Dates: end: 20160908
  3. TRAMADOL. [Concomitant]
     Active Substance: TRAMADOL
     Indication: PAIN
     Dosage: 50 MG, AS NEEDED
     Route: 048
     Dates: end: 20160908
  4. LAXIDO [Concomitant]
     Active Substance: POLYETHYLENE GLYCOL 3350\POTASSIUM CHLORIDE\SODIUM BICARBONATE\SODIUM CHLORIDE
     Indication: CONSTIPATION
     Dosage: UNK
     Route: 048
     Dates: end: 20160908
  5. PYRIDOXINE [Concomitant]
     Active Substance: PYRIDOXINE
     Indication: PRODUCT USED FOR UNKNOWN INDICATION
     Dosage: TO MITIGATE POTENTIAL NEUROLOGICAL SIDE EFFECTS OF CHEMOTHERAPY
     Route: 048
     Dates: start: 20160525, end: 20160908
  6. DENOSUMAB [Concomitant]
     Active Substance: DENOSUMAB
     Indication: PRODUCT USED FOR UNKNOWN INDICATION
     Dosage: 120 MG, 1 MONTH
     Route: 058
     Dates: end: 20160824
  7. VINORELBINE TARTRATE. [Suspect]
     Active Substance: VINORELBINE TARTRATE
     Dosage: 140 MG, UNK
     Route: 048
     Dates: start: 20151230, end: 20160115
  8. VINORELBINE TARTRATE. [Suspect]
     Active Substance: VINORELBINE TARTRATE
     Dosage: 150 MG, UNK
     Route: 048
     Dates: start: 20151204, end: 20151223
  9. CAPECITABINE. [Suspect]
     Active Substance: CAPECITABINE
     Indication: BREAST CANCER METASTATIC
     Dosage: 3000 MG, QD (1/DAY)
     Route: 048
     Dates: start: 20160603, end: 20160623
  10. OMEPRAZOLE. [Concomitant]
     Active Substance: OMEPRAZOLE
     Indication: PROPHYLAXIS
     Route: 065
  11. VINORELBINE TARTRATE. [Suspect]
     Active Substance: VINORELBINE TARTRATE
     Dosage: 110 MG, UNK
     Route: 048
     Dates: start: 20151002, end: 20151030
  12. ASPIRIN [ACETYLSALICYLIC ACID] [Concomitant]
     Active Substance: ASPIRIN
     Indication: PRODUCT USED FOR UNKNOWN INDICATION
     Dosage: 75 MG, QD (1/DAY)
     Route: 048
     Dates: end: 20160908
  13. TRASTUZUMAB, HYALURONIDASE (HUMAN RECOMBINANT) [Suspect]
     Active Substance: HYALURONIDASE (HUMAN RECOMBINANT)\TRASTUZUMAB
     Indication: BREAST CANCER METASTATIC
     Dosage: 600 MG, UNK
     Route: 058
     Dates: start: 20151005, end: 20160908
  14. LAXIDO [Concomitant]
     Active Substance: POLYETHYLENE GLYCOL 3350\POTASSIUM CHLORIDE\SODIUM BICARBONATE\SODIUM CHLORIDE
     Dosage: UNK UNK, QD (1/DAY)
     Route: 048
     Dates: start: 20160809, end: 20160809
  15. VINORELBINE TARTRATE. [Suspect]
     Active Substance: VINORELBINE TARTRATE
     Dosage: 140 MG, UNK
     Route: 048
     Dates: start: 20151113, end: 20151120
  16. GABAPENTIN. [Concomitant]
     Active Substance: GABAPENTIN
     Indication: PRODUCT USED FOR UNKNOWN INDICATION
     Dosage: 600 MG, QD (1/DAY)
     Route: 048
     Dates: end: 20160908
  17. ATORVASTATIN [Concomitant]
     Active Substance: ATORVASTATIN
     Indication: PRODUCT USED FOR UNKNOWN INDICATION
     Dosage: 40 MG, QD (1/DAY)
     Route: 048
     Dates: end: 20160908
  18. ADCAL D3 [Concomitant]
     Active Substance: CALCIUM CARBONATE\CHOLECALCIFEROL
     Indication: PRODUCT USED FOR UNKNOWN INDICATION
     Dosage: 1 UNK, QD (1/DAY)
     Route: 048
     Dates: end: 20160908
  19. CAPECITABINE. [Suspect]
     Active Substance: CAPECITABINE
     Indication: PRODUCT USED FOR UNKNOWN INDICATION
     Dosage: 3600 UNK, QD (1/DAY)
     Route: 048
     Dates: start: 20160401, end: 20160603
  20. ACYCLOVIR [ACICLOVIR] [Concomitant]
     Active Substance: ACYCLOVIR
     Indication: PRODUCT USED FOR UNKNOWN INDICATION
     Dosage: 5 %, QD (1/DAY)
     Route: 061
     Dates: start: 20020108, end: 20020113
  21. CAPECITABINE. [Suspect]
     Active Substance: CAPECITABINE
     Dosage: 3600 MG, UNK
     Route: 048
     Dates: start: 20160331
  22. OXYCODONE [Concomitant]
     Active Substance: OXYCODONE
     Indication: PRODUCT USED FOR UNKNOWN INDICATION
     Dosage: 5 MG, AS NEEDED.
     Route: 048
     Dates: end: 20160908
  23. DOCUSATE SODIUM. [Concomitant]
     Active Substance: DOCUSATE SODIUM
     Indication: PRODUCT USED FOR UNKNOWN INDICATION
     Dosage: 200 MG, QD (1/DAY)
     Route: 048
     Dates: end: 20160908
  24. TAMOXIFEN [Suspect]
     Active Substance: TAMOXIFEN
     Indication: BREAST CANCER METASTATIC
     Dosage: 20 MG, QD (1/DAY)
     Route: 048
     Dates: start: 20160708, end: 20160908

REACTIONS (16)
  - Dyspnoea exertional [Fatal]
  - Dizziness [Fatal]
  - Oral pain [Fatal]
  - Lymphoedema [Fatal]
  - Palmar-plantar erythrodysaesthesia syndrome [Fatal]
  - Cough [Fatal]
  - Sepsis [Fatal]
  - Musculoskeletal pain [Fatal]
  - Constipation [Fatal]
  - Death [Fatal]
  - Hypoglycaemia [Fatal]
  - Fatigue [Fatal]
  - Lower respiratory tract infection [Fatal]
  - Hepatic pain [Fatal]
  - Fatigue [Fatal]
  - Lymphadenopathy [Fatal]

NARRATIVE: CASE EVENT DATE: 20160211
